FAERS Safety Report 4642558-3 (Version None)
Quarter: 2005Q2

REPORT INFORMATION
  Report Type: 
  Country: None (occurrence: None)
  Receive Date: 20050422
  Receipt Date: 20050412
  Transmission Date: 20051028
  Serious: Yes (Death, Other)
  Sender: FDA-Public Use
  Company Number: IT-BRISTOL-MYERS SQUIBB COMPANY-12932612

PATIENT
  Age: 24 Year
  Sex: Male

DRUGS (3)
  1. ABILIFY [Suspect]
     Indication: PSYCHOTIC DISORDER
     Route: 048
     Dates: start: 20050316, end: 20050411
  2. OLANZAPINE [Concomitant]
  3. LORAZEPAM [Concomitant]

REACTIONS (2)
  - COMPLETED SUICIDE [None]
  - RESTLESSNESS [None]
